FAERS Safety Report 6220147-7 (Version None)
Quarter: 2009Q2

REPORT INFORMATION
  Report Type: 
  Country: None (occurrence: None)
  Receive Date: 20090609
  Receipt Date: 20090601
  Transmission Date: 20091009
  Serious: Yes (Other)
  Sender: FDA-Public Use
  Company Number: DE-GILEAD-2009-0021468

PATIENT
  Sex: Male
  Weight: 78 kg

DRUGS (6)
  1. VIREAD [Suspect]
     Indication: HEPATITIS B
     Route: 048
     Dates: start: 20050701
  2. HEPSERA [Suspect]
     Indication: HEPATITIS B
     Dates: start: 20040901, end: 20050601
  3. LAMIVUDINE [Concomitant]
     Dates: start: 20040101, end: 20040901
  4. ALLOPURINOL [Concomitant]
     Dates: start: 20030101
  5. LISINOPRIL/HYDROCHLOROTHIAZID [Concomitant]
  6. XALATAN [Concomitant]

REACTIONS (3)
  - BLOOD CREATINE PHOSPHOKINASE INCREASED [None]
  - HIP SWELLING [None]
  - NO THERAPEUTIC RESPONSE [None]
